FAERS Safety Report 5133527-8 (Version None)
Quarter: 2006Q4

REPORT INFORMATION
  Report Type: 
  Country: None (occurrence: None)
  Receive Date: 20061024
  Receipt Date: 20060216
  Transmission Date: 20070319
  Serious: No
  Sender: FDA-Public Use
  Company Number: US-BRISTOL-MYERS SQUIBB COMPANY-13285648

PATIENT
  Age: 2 Year
  Sex: Female
  Weight: 11 kg

DRUGS (3)
  1. CEFZIL [Suspect]
     Indication: EAR INFECTION
     Route: 048
     Dates: start: 20060212
  2. AMOXICILLIN [Suspect]
     Indication: EAR INFECTION
     Route: 048
     Dates: start: 20060124
  3. TYLENOL [Concomitant]
     Indication: PYREXIA
     Route: 048

REACTIONS (3)
  - ALOPECIA [None]
  - DRUG INEFFECTIVE [None]
  - PYREXIA [None]
